FAERS Safety Report 5268485-9 (Version None)
Quarter: 2007Q1

REPORT INFORMATION
  Report Type: 
  Country: None (occurrence: None)
  Receive Date: 20070313
  Receipt Date: 20070228
  Transmission Date: 20070707
  Serious: Yes (Death, Congenital Anomaly, Other)
  Sender: FDA-Public Use
  Company Number: 2007BI005114

PATIENT
  Sex: Female

DRUGS (2)
  1. AVONEX [Suspect]
     Indication: MULTIPLE SCLEROSIS
     Dosage: TRPL
     Route: 064
     Dates: start: 20010514, end: 20060701
  2. AVONEX [Suspect]
     Indication: MULTIPLE SCLEROSIS
     Dates: end: 20070219

REACTIONS (2)
  - DRUG EXPOSURE DURING PREGNANCY [None]
  - TRISOMY 21 [None]
